FAERS Safety Report 4467111-6 (Version None)
Quarter: 2004Q4

REPORT INFORMATION
  Report Type: 
  Country: None (occurrence: None)
  Receive Date: 20041004
  Receipt Date: 20041004
  Transmission Date: 20050328
  Serious: No
  Sender: FDA-Public Use
  Company Number: None

PATIENT
  Age: 38 Year
  Sex: Male

DRUGS (1)
  1. CIPRO [Suspect]
     Indication: POSTOPERATIVE INFECTION
     Dosage: 400 MG Q 12 IV
     Route: 042
     Dates: start: 20040928, end: 20041001

REACTIONS (1)
  - ABDOMINAL DISCOMFORT [None]
